FAERS Safety Report 19736643 (Version 1)
Quarter: 2021Q3

REPORT INFORMATION
  Report Type: Spontaneous
  Country: US (occurrence: US)
  Receive Date: 20210824
  Receipt Date: 20210824
  Transmission Date: 20211014
  Serious: No
  Sender: FDA-Public Use
  Company Number: US-SA-2021SA276540

PATIENT
  Age: 69 Year
  Sex: Female

DRUGS (3)
  1. DUPIXENT [Suspect]
     Active Substance: DUPILUMAB
     Indication: INFLAMMATION
  2. DUPIXENT [Suspect]
     Active Substance: DUPILUMAB
     Indication: SARCOIDOSIS
  3. DUPIXENT [Suspect]
     Active Substance: DUPILUMAB
     Indication: NASAL POLYPS
     Dosage: 300 MG, QOW

REACTIONS (6)
  - Rash erythematous [Unknown]
  - Palpitations [Unknown]
  - Hot flush [Unknown]
  - Burning sensation [Unknown]
  - Skin depigmentation [Unknown]
  - Product use in unapproved indication [Unknown]

NARRATIVE: CASE EVENT DATE: 20210803
